FAERS Safety Report 6438915-5 (Version None)
Quarter: 2009Q4

REPORT INFORMATION
  Report Type: 
  Country: None (occurrence: None)
  Receive Date: 20091113
  Receipt Date: 20091105
  Transmission Date: 20100525
  Serious: Yes (Other)
  Sender: FDA-Public Use
  Company Number: PHHY2009BR41981

PATIENT
  Sex: Male
  Weight: 33 kg

DRUGS (2)
  1. RITALIN [Suspect]
     Dosage: 10 MG, UNK
     Route: 048
  2. RITALIN [Suspect]
     Dosage: 10 MG, UNK
     Route: 048
     Dates: start: 20090926

REACTIONS (16)
  - AGITATION [None]
  - CHEST PAIN [None]
  - DARK CIRCLES UNDER EYES [None]
  - DELIRIUM [None]
  - DISTURBANCE IN ATTENTION [None]
  - DIZZINESS [None]
  - DYSARTHRIA [None]
  - ERYTHEMA [None]
  - FEELING ABNORMAL [None]
  - HEART RATE INCREASED [None]
  - HYPOPHAGIA [None]
  - OCULAR HYPERAEMIA [None]
  - PALLOR [None]
  - PERIPHERAL COLDNESS [None]
  - PSYCHOMOTOR HYPERACTIVITY [None]
  - THIRST [None]
